FAERS Safety Report 6582973-4 (Version None)
Quarter: 2010Q1

REPORT INFORMATION
  Report Type: 
  Country: None (occurrence: None)
  Receive Date: 20100216
  Receipt Date: 20100202
  Transmission Date: 20100710
  Serious: Yes (Death, Life-Threatening, Hospitalization)
  Sender: FDA-Public Use
  Company Number: US-ROCHE-570719

PATIENT
  Sex: Male
  Weight: 60.8 kg

DRUGS (15)
  1. BEVACIZUMAB [Suspect]
     Dosage: 5 MG/KG, Q2W
     Route: 042
     Dates: start: 20071112, end: 20080317
  2. BEVACIZUMAB [Suspect]
     Dosage: TEMPORARILY DISCONTINUED.  PERMANENTLY DISCONTINUED LATER.
     Route: 042
     Dates: start: 20071112, end: 20080317
  3. OXALIPLATIN [Suspect]
     Dosage: 85 MG/M2, Q2W
     Route: 041
     Dates: start: 20071112, end: 20080317
  4. OXALIPLATIN [Suspect]
     Dosage: TEMPORARILY DISCONTINUED.  PERMANENTLY DISCONTINUED LATER.
     Route: 041
     Dates: start: 20071112, end: 20080317
  5. 5-FU [Suspect]
     Dosage: TDD: 648 MG. TEMPORARILY DISCONTINUED.  PERMANENTLY DISCONTINUED LATER.
     Route: 040
     Dates: start: 20071112, end: 20080317
  6. 5-FU [Suspect]
     Route: 040
     Dates: start: 20071112, end: 20080317
  7. 5-FU [Suspect]
     Dosage: FORM: INFUSION. FREQUENCY: DAY 1-5 EVERY 2 WEEKS. TDD: 3888 MG.
     Route: 042
     Dates: start: 20071112, end: 20080319
  8. 5-FU [Suspect]
     Dosage: TEMPORARILY DISCONTINUED.  PERMANENTLY DISCONTINUED LATER.
     Route: 042
     Dates: start: 20071112, end: 20080319
  9. LEUCOVORIN CALCIUM [Suspect]
     Dosage: 648 MG, Q2W
     Route: 042
     Dates: start: 20071112, end: 20080317
  10. LEUCOVORIN CALCIUM [Suspect]
     Dosage: TEMPORARILY DISCONTINUED.  PERMANENTLY DISCONTINUED LATER.
     Route: 042
     Dates: start: 20071112, end: 20080317
  11. ZOFRAN [Concomitant]
     Indication: DRUG USE FOR UNKNOWN INDICATION
     Route: 048
     Dates: start: 20080322, end: 20080323
  12. PRILOSEC [Concomitant]
     Indication: DRUG USE FOR UNKNOWN INDICATION
     Route: 048
     Dates: start: 20080322
  13. ALTERNAGEL [Concomitant]
     Indication: DRUG USE FOR UNKNOWN INDICATION
     Route: 048
     Dates: start: 20080317
  14. LASIX [Concomitant]
     Indication: DRUG USE FOR UNKNOWN INDICATION
     Route: 048
     Dates: start: 20080317
  15. PERI-COLACE [Concomitant]
     Indication: DRUG USE FOR UNKNOWN INDICATION
     Route: 048
     Dates: start: 20080317

REACTIONS (6)
  - ANAEMIA [None]
  - DEEP VEIN THROMBOSIS [None]
  - DISEASE PROGRESSION [None]
  - GASTROINTESTINAL HAEMORRHAGE [None]
  - OESOPHAGITIS [None]
  - SHOCK HAEMORRHAGIC [None]
